FAERS Safety Report 10762500 (Version 2)
Quarter: 2015Q2

REPORT INFORMATION
  Report Type: Report from Study
  Country: SR (occurrence: SR)
  Receive Date: 20150204
  Receipt Date: 20150413
  Transmission Date: 20150821
  Serious: Yes (Death, Hospitalization, Other)
  Sender: FDA-Public Use
  Company Number: PHHY2015SR010245

PATIENT
  Age: 49 Year
  Sex: Male

DRUGS (1)
  1. TASIGNA [Suspect]
     Active Substance: NILOTINIB
     Indication: CHRONIC MYELOID LEUKAEMIA
     Dosage: 400 MG, BID
     Route: 065

REACTIONS (5)
  - Anaemia [Unknown]
  - Multi-organ failure [Fatal]
  - Bone marrow failure [Unknown]
  - Chronic myeloid leukaemia transformation [Unknown]
  - Sepsis [Fatal]

NARRATIVE: CASE EVENT DATE: 20140619
